FAERS Safety Report 11824529 (Version 2)
Quarter: 2016Q2

REPORT INFORMATION
  Report Type: Spontaneous
  Country: US (occurrence: US)
  Receive Date: 20151210
  Receipt Date: 20160620
  Transmission Date: 20160815
  Serious: Yes (Other)
  Sender: FDA-Public Use
  Company Number: US-BRISTOL-MYERS SQUIBB COMPANY-BMS-2015-084320

PATIENT
  Sex: Male

DRUGS (1)
  1. OPDIVO [Suspect]
     Active Substance: NIVOLUMAB
     Indication: RENAL CELL CARCINOMA
     Route: 065

REACTIONS (10)
  - Arthralgia [Unknown]
  - Off label use [Unknown]
  - Rash [Unknown]
  - Abnormal dreams [Unknown]
  - Myalgia [Unknown]
  - Cancer pain [Unknown]
  - Fatigue [Unknown]
  - Hallucination [Unknown]
  - Decreased appetite [Unknown]
  - Dyspnoea [Unknown]
